FAERS Safety Report 14948573 (Version 2)
Quarter: 2018Q2

REPORT INFORMATION
  Report Type: Report from Study
  Country: US (occurrence: US)
  Receive Date: 20180529
  Receipt Date: 20180607
  Transmission Date: 20180711
  Serious: Yes (Hospitalization, Other)
  Sender: FDA-Public Use
  Company Number: US-PFIZER INC-2018187117

PATIENT
  Age: 76 Year
  Sex: Male

DRUGS (1)
  1. SUTENT [Suspect]
     Active Substance: SUNITINIB MALATE
     Indication: GASTROINTESTINAL STROMAL TUMOUR
     Dosage: 50 MG, CYCLIC [4 WEEKS ON, 2 WEEKS OFF]
     Route: 048
     Dates: start: 20180423, end: 20180514

REACTIONS (18)
  - Oedema peripheral [Recovered/Resolved]
  - Gait disturbance [Recovered/Resolved]
  - Insomnia [Unknown]
  - Chest discomfort [Recovered/Resolved]
  - Decreased appetite [Unknown]
  - Blood pressure increased [Recovered/Resolved]
  - Arthralgia [Unknown]
  - Headache [Unknown]
  - Back pain [Unknown]
  - Thinking abnormal [Unknown]
  - Fall [Recovered/Resolved]
  - Fatigue [Unknown]
  - Hypertension [Not Recovered/Not Resolved]
  - Asthenia [Not Recovered/Not Resolved]
  - Hyperhidrosis [Unknown]
  - Dyspnoea [Recovered/Resolved]
  - Confusional state [Recovered/Resolved]
  - Stomatitis [Unknown]

NARRATIVE: CASE EVENT DATE: 2018
